FAERS Safety Report 4530531-5 (Version None)
Quarter: 2004Q4

REPORT INFORMATION
  Report Type: 
  Country: None (occurrence: None)
  Receive Date: 20041216
  Receipt Date: 20041130
  Transmission Date: 20050328
  Serious: Yes (Hospitalization)
  Sender: FDA-Public Use
  Company Number: A02200403540

PATIENT
  Age: 82 Year
  Sex: Male

DRUGS (4)
  1. PLAVIX [Suspect]
     Indication: ARTERITIS
     Dosage: 75 MG OD ORAL
     Route: 048
     Dates: start: 20030115, end: 20040718
  2. OMIX - (TAMSULOSIN HYDROCHLORIDE) - CAPSULE PR - 0.4 MG [Suspect]
     Dosage: 0.4 MG OD ORAL
     Route: 048
     Dates: end: 20040718
  3. SYMBICORT - (BUDESONIDE/FORMOTEROL) - POWDER [Suspect]
     Indication: ASTHMA
     Dosage: RESPIRATORY (INHALATION)
     Route: 055
     Dates: start: 20030415, end: 20040718
  4. SYMBICORT - (BUDESONIDE/FORMOTEROL) - POWDER [Suspect]
     Indication: BRONCHITIS CHRONIC
     Dosage: RESPIRATORY (INHALATION)
     Route: 055
     Dates: start: 20030415, end: 20040718

REACTIONS (7)
  - BLOOD CHOLESTEROL DECREASED [None]
  - FLATULENCE [None]
  - HYPOTHERMIA [None]
  - PANCREATIC DISORDER [None]
  - PANCREATITIS ACUTE [None]
  - PERIPANCREATIC FLUID COLLECTION [None]
  - STAPHYLOCOCCAL SEPSIS [None]
